FAERS Safety Report 6602104-1 (Version None)
Quarter: 2010Q1

REPORT INFORMATION
  Report Type: 
  Country: None (occurrence: None)
  Receive Date: 20100225
  Receipt Date: 20100215
  Transmission Date: 20100710
  Serious: Yes (Other)
  Sender: FDA-Public Use
  Company Number: PHHY2010BR09165

PATIENT
  Age: 10 Month
  Sex: Male

DRUGS (7)
  1. CYCLOSPORINE [Suspect]
     Indication: CORD BLOOD TRANSPLANT THERAPY
  2. CYCLOSPORINE [Suspect]
     Indication: PROPHYLAXIS AGAINST GRAFT VERSUS HOST DISEASE
  3. STEROIDS NOS [Suspect]
     Indication: CORD BLOOD TRANSPLANT THERAPY
  4. STEROIDS NOS [Suspect]
     Indication: PROPHYLAXIS AGAINST GRAFT VERSUS HOST DISEASE
  5. BUSULFAN [Concomitant]
     Indication: CORD BLOOD TRANSPLANT THERAPY
  6. CYCLOPHOSPHAMIDE [Concomitant]
     Indication: CORD BLOOD TRANSPLANT THERAPY
  7. ANTI-THYMOCYTE GLOBULIN NOS [Concomitant]
     Indication: CORD BLOOD TRANSPLANT THERAPY

REACTIONS (3)
  - ACUTE GRAFT VERSUS HOST DISEASE [None]
  - BONE TUBERCULOSIS [None]
  - VENOOCCLUSIVE DISEASE [None]
